FAERS Safety Report 13976955 (Version 4)
Quarter: 2017Q4

REPORT INFORMATION
  Report Type: Report from Study
  Country: US (occurrence: US)
  Receive Date: 20170914
  Receipt Date: 20171106
  Transmission Date: 20180321
  Serious: Yes (Other)
  Sender: FDA-Public Use
  Company Number: US-EMD SERONO-E2B_80079474

PATIENT
  Age: 59 Year
  Sex: Female
  Weight: 80 kg

DRUGS (4)
  1. REBIF [Suspect]
     Active Substance: INTERFERON BETA-1A
     Route: 058
     Dates: start: 20170818
  2. REBIF [Suspect]
     Active Substance: INTERFERON BETA-1A
     Indication: RELAPSING-REMITTING MULTIPLE SCLEROSIS
     Route: 058
     Dates: start: 20170802
  3. REBIF [Suspect]
     Active Substance: INTERFERON BETA-1A
     Route: 058
     Dates: start: 20170919
  4. INSULIN [Concomitant]
     Active Substance: INSULIN NOS
     Indication: DIABETES MELLITUS
     Dates: start: 20170802, end: 20170818

REACTIONS (16)
  - Productive cough [Not Recovered/Not Resolved]
  - Haematocrit decreased [Unknown]
  - Platelet count increased [Unknown]
  - Dehydration [Recovering/Resolving]
  - Globulins increased [Unknown]
  - Myelocyte count increased [Unknown]
  - Lymphocyte count decreased [Unknown]
  - Blood albumin decreased [Unknown]
  - Haemoglobin decreased [Unknown]
  - Pancreatitis acute [Recovered/Resolved]
  - Pulmonary congestion [Not Recovered/Not Resolved]
  - Red blood cell count decreased [Unknown]
  - Gastrointestinal disorder [Unknown]
  - Hepatosplenomegaly [Not Recovered/Not Resolved]
  - Blood glucose increased [Unknown]
  - Neutrophil count increased [Unknown]

NARRATIVE: CASE EVENT DATE: 201708
